FAERS Safety Report 16211873 (Version 1)
Quarter: 2019Q2

REPORT INFORMATION
  Report Type: Spontaneous
  Country: US (occurrence: US)
  Receive Date: 20190417
  Receipt Date: 20190417
  Transmission Date: 20190711
  Serious: Yes (Life-Threatening, Hospitalization, Disabling, Other)
  Sender: FDA-Public Use
  Company Number: None

PATIENT
  Age: 37 Year
  Sex: Female
  Weight: 63 kg

DRUGS (1)
  1. LEVOFLAXACIN [Suspect]
     Active Substance: LEVOFLOXACIN
     Indication: SINUSITIS
     Dosage: ?          QUANTITY:1 TABLET(S);?
     Route: 048
     Dates: start: 20161228, end: 20161228

REACTIONS (18)
  - Gait inability [None]
  - Anxiety [None]
  - Neurotoxicity [None]
  - Psychiatric symptom [None]
  - Postural orthostatic tachycardia syndrome [None]
  - Vitamin D decreased [None]
  - Neuralgia [None]
  - Pain [None]
  - Depression [None]
  - Weight decreased [None]
  - Depersonalisation/derealisation disorder [None]
  - Derealisation [None]
  - Muscle atrophy [None]
  - Fatigue [None]
  - Malaise [None]
  - Suicidal ideation [None]
  - Toxicity to various agents [None]
  - Mood swings [None]

NARRATIVE: CASE EVENT DATE: 20161228
